FAERS Safety Report 4284753-1 (Version None)
Quarter: 2004Q1

REPORT INFORMATION
  Report Type: 
  Country: None (occurrence: None)
  Receive Date: 20040202
  Receipt Date: 20040120
  Transmission Date: 20041129
  Serious: Yes (Death, Hospitalization, Other)
  Sender: FDA-Public Use
  Company Number: 2004-SW-00017SW

PATIENT
  Age: 76 Year
  Sex: Male

DRUGS (4)
  1. SIFROL                (PRAMIPEXOLE DIHYDROCHLORIDE) [Suspect]
     Indication: PARKINSONISM
     Dosage: 0.72 MG, PO
     Route: 048
     Dates: start: 19980101, end: 20030120
  2. SIFROL                (PRAMIPEXOLE DIHYDROCHLORIDE) [Suspect]
     Indication: PARKINSONISM
     Dosage: 0.72 MG, PO
     Route: 048
     Dates: start: 19980101
  3. MADOPARK (MADOPAR) [Suspect]
     Indication: PARKINSONISM
     Dosage: 400 MG, PO
     Route: 048
     Dates: start: 19960101, end: 20030120
  4. MADOPARK (MADOPAR) [Suspect]
     Indication: PARKINSONISM
     Dosage: 400 MG, PO
     Route: 048
     Dates: start: 19960101

REACTIONS (6)
  - GENERAL PHYSICAL HEALTH DETERIORATION [None]
  - INFLAMMATION [None]
  - IRON DEFICIENCY ANAEMIA [None]
  - PNEUMONIA [None]
  - PULMONARY FIBROSIS [None]
  - PULMONARY OEDEMA [None]
